FAERS Safety Report 26130768 (Version 1)
Quarter: 2025Q4

REPORT INFORMATION
  Report Type: Report from Study
  Country: AU (occurrence: AU)
  Receive Date: 20251208
  Receipt Date: 20251208
  Transmission Date: 20260117
  Serious: Yes (Death)
  Sender: AMGEN
  Company Number: AU-AMGEN-AUSSP2025238663

PATIENT
  Age: 67 Year

DRUGS (1)
  1. TARLATAMAB [Suspect]
     Active Substance: TARLATAMAB
     Indication: Small cell lung cancer extensive stage
     Dosage: , Q2WK
     Route: 065

REACTIONS (1)
  - Small cell lung cancer extensive stage [Fatal]
